FAERS Safety Report 7561056-0 (Version None)
Quarter: 2011Q2

REPORT INFORMATION
  Report Type: 
  Country: None (occurrence: None)
  Receive Date: 20110621
  Receipt Date: 20110609
  Transmission Date: 20111010
  Serious: Yes (Hospitalization)
  Sender: FDA-Public Use
  Company Number: US-UCBSA-035075

PATIENT
  Sex: Female
  Weight: 33.6 kg

DRUGS (12)
  1. VSL#3 [Concomitant]
     Indication: ROUTINE HEALTH MAINTENANCE
     Dosage: 1 TABLET
     Route: 048
     Dates: start: 20110314
  2. VSL#3 [Concomitant]
     Indication: CROHN'S DISEASE
     Dosage: 1 TABLET
     Route: 048
     Dates: start: 20110314
  3. ENTOCORT EC [Concomitant]
     Indication: CROHN'S DISEASE
     Route: 048
     Dates: start: 20110208, end: 20110516
  4. MULTI-VITAMIN [Concomitant]
     Indication: MEDICAL DIET
     Dosage: 1 TABLET
     Route: 048
     Dates: start: 20020101
  5. CERTOLIZUMAB PEGOL [Suspect]
     Route: 058
     Dates: start: 20110527
  6. LOVAZA [Concomitant]
     Indication: ROUTINE HEALTH MAINTENANCE
     Dosage: 1 TABLET
     Route: 048
     Dates: start: 20110214
  7. MULTI-VITAMIN [Concomitant]
     Indication: ROUTINE HEALTH MAINTENANCE
     Dosage: 1 TABLET
     Route: 048
     Dates: start: 20020101
  8. CERTOLIZUMAB PEGOL [Suspect]
     Indication: CROHN'S DISEASE
     Dosage: NO OF DOSES RECEIVED: 3
     Route: 058
     Dates: start: 20110329, end: 20110427
  9. ENTOCORT EC [Concomitant]
     Route: 048
     Dates: start: 20110517, end: 20110527
  10. LOVAZA [Concomitant]
     Indication: MEDICAL DIET
     Dosage: 1 TABLET
     Route: 048
     Dates: start: 20110214
  11. CALCIUM CITRATE [Concomitant]
     Indication: ROUTINE HEALTH MAINTENANCE
     Dosage: UNKNOWN DOSE
     Route: 048
     Dates: start: 20100128
  12. CALCIUM CITRATE [Concomitant]
     Indication: MEDICAL DIET
     Dosage: UNKNOWN DOSE
     Route: 048
     Dates: start: 20100128

REACTIONS (3)
  - DIARRHOEA [None]
  - PYREXIA [None]
  - CANDIDIASIS [None]
